FAERS Safety Report 8010707 (Version 14)
Quarter: 2013Q3

REPORT INFORMATION
  Report Type: Spontaneous
  Country: US (occurrence: US)
  Receive Date: 20110627
  Receipt Date: 20130819
  Transmission Date: 20140515
  Serious: Yes (Other)
  Sender: FDA-Public Use
  Company Number: PHEH2011US00508

PATIENT
  Sex: Male

DRUGS (13)
  1. ZOMETA [Suspect]
     Indication: METASTASES TO BONE
     Route: 042
     Dates: start: 20040217, end: 20060906
  2. MORPHINE [Concomitant]
  3. SYNTHROID [Concomitant]
  4. AMITRIPTYLINE [Concomitant]
  5. COZAAR [Concomitant]
  6. NORVASC [Concomitant]
  7. CATAPRES                                /UNK/ [Concomitant]
  8. PERIDEX [Concomitant]
  9. CLINDAMYCIN HYDROCHLORIDE [Concomitant]
     Dosage: 300 MG, QID
  10. TYLOX [Concomitant]
     Dosage: 500 MG, PRN
  11. VISTARIL [Concomitant]
     Dosage: 25 MG, QID
  12. ZOLADEX [Concomitant]
  13. MS CONTIN [Concomitant]
     Dosage: 30 MG, BID

REACTIONS (95)
  - Osteonecrosis of jaw [Unknown]
  - Pain [Unknown]
  - Infection [Unknown]
  - Injury [Unknown]
  - Disability [Unknown]
  - Deformity [Unknown]
  - Emotional distress [Unknown]
  - Tooth abscess [Unknown]
  - Toothache [Unknown]
  - Hypothyroidism [Unknown]
  - Renal cell carcinoma [Unknown]
  - Metastases to bone [Unknown]
  - Prostate cancer [Unknown]
  - Hepatitis C [Recovered/Resolved]
  - Oral mucosal blistering [Unknown]
  - Thyroid cancer metastatic [Unknown]
  - Myelodysplastic syndrome [Unknown]
  - Cellulitis [Unknown]
  - Fistula [Unknown]
  - Leukaemia [Unknown]
  - Exposed bone in jaw [Unknown]
  - Pericardial effusion [Unknown]
  - Haemangioma of liver [Unknown]
  - Lipoma [Unknown]
  - Hilar lymphadenopathy [Unknown]
  - Hepatic mass [Unknown]
  - Lymphadenopathy [Unknown]
  - Depression [Unknown]
  - Cardiomegaly [Unknown]
  - Spinal osteoarthritis [Unknown]
  - Aortic arteriosclerosis [Unknown]
  - Sinusitis [Unknown]
  - Jaw fracture [Unknown]
  - Emphysema [Unknown]
  - Lymphadenopathy mediastinal [Unknown]
  - Hepatic neoplasm [Unknown]
  - Bone lesion [Unknown]
  - Renal cyst [Unknown]
  - Hepatic cyst [Unknown]
  - Liver disorder [Unknown]
  - Arteriosclerosis coronary artery [Unknown]
  - Splenic lesion [Unknown]
  - Osteosclerosis [Unknown]
  - Prostatomegaly [Unknown]
  - Diverticulum intestinal [Unknown]
  - Aortic dilatation [Unknown]
  - Pulmonary mass [Unknown]
  - Bone pain [Unknown]
  - Osteitis [Unknown]
  - Colon cancer [Unknown]
  - Metastatic renal cell carcinoma [Unknown]
  - Chronic lymphocytic leukaemia [Unknown]
  - Splenomegaly [Unknown]
  - Metastases to pelvis [Unknown]
  - Enteritis [Unknown]
  - Haemorrhoids [Unknown]
  - Pneumonia [Unknown]
  - Bacterial disease carrier [Unknown]
  - Wound [Unknown]
  - Skin ulcer [Unknown]
  - Ulcer [Unknown]
  - Neck mass [Unknown]
  - Cataract [Unknown]
  - Chronic obstructive pulmonary disease [Unknown]
  - Bipolar disorder [Unknown]
  - Bladder outlet obstruction [Unknown]
  - Urinary retention [Unknown]
  - Exostosis [Unknown]
  - Inguinal hernia [Unknown]
  - Haematuria [Unknown]
  - Osteomyelitis [Unknown]
  - Abdominal lymphadenopathy [Unknown]
  - Throat lesion [Unknown]
  - Bone cancer [Unknown]
  - Anaemia [Unknown]
  - Osteoarthritis [Unknown]
  - Gingival pain [Unknown]
  - Gingival swelling [Unknown]
  - Dysthymic disorder [Unknown]
  - Hyperthermia malignant [Unknown]
  - Gallbladder polyp [Unknown]
  - Periodontal disease [Unknown]
  - Loose tooth [Unknown]
  - Rotator cuff syndrome [Unknown]
  - Gingivitis [Unknown]
  - Tooth infection [Unknown]
  - Purulent discharge [Unknown]
  - Asthma [Unknown]
  - Dermatitis [Unknown]
  - Gastrooesophageal reflux disease [Unknown]
  - Dyspnoea [Unknown]
  - Cough [Unknown]
  - Nocturia [Unknown]
  - Lip swelling [Unknown]
  - Arthralgia [Unknown]
